FAERS Safety Report 16208032 (Version 1)
Quarter: 2019Q2

REPORT INFORMATION
  Report Type: Spontaneous
  Country: US (occurrence: US)
  Receive Date: 20190315
  Receipt Date: 20190315
  Transmission Date: 20190711
  Serious: No
  Sender: FDA-Public Use
  Company Number: None

PATIENT
  Age: 63 Year
  Sex: Female

DRUGS (1)
  1. MYCOPHENOLATE MOFETIL 500MG TABLET [Suspect]
     Active Substance: MYCOPHENOLATE MOFETIL
     Dates: start: 2008

REACTIONS (1)
  - Sinusitis [None]

NARRATIVE: CASE EVENT DATE: 20190315
